FAERS Safety Report 5144816-5 (Version None)
Quarter: 2006Q4

REPORT INFORMATION
  Report Type: 
  Country: None (occurrence: None)
  Receive Date: 20061103
  Receipt Date: 20061103
  Transmission Date: 20070319
  Serious: No
  Sender: FDA-Public Use
  Company Number: None

PATIENT
  Age: 35 Year
  Sex: Male

DRUGS (1)
  1. OPTIRAY 320 [Suspect]
     Indication: COMPUTERISED TOMOGRAM
     Dosage: 100ML ONE TIME IV
     Route: 042
     Dates: start: 20061011, end: 20061011

REACTIONS (3)
  - PRURITUS [None]
  - SNEEZING [None]
  - URTICARIA [None]
